FAERS Safety Report 6604702 (Version 6)
Quarter: 2020Q3

REPORT INFORMATION
  Report Type: Spontaneous
  Country: DK (occurrence: None)
  Receive Date: 20080321
  Receipt Date: 20100106
  Transmission Date: 20201105
  Serious: Yes (Death, Life-Threatening)
  Sender: FDA-Public Use
  Company Number: S08-DEN-00939-01

PATIENT
  Age: 36 Year
  Sex: Female

DRUGS (5)
  1. SEROQUEL [Suspect]
     Active Substance: QUETIAPINE FUMARATE
     Indication: MENTAL DISORDER
     Dosage: ORAL
     Route: 048
     Dates: start: 2003
  2. CITALOPRAM [Suspect]
     Active Substance: CITALOPRAM HYDROBROMIDE
     Indication: DEPRESSION
     Dosage: 30 MG (30 MG, 1 IN 1 D),ORAL; 60 MG (60 MG, 1 IN 1 D),ORAL
     Route: 048
     Dates: start: 2003
  3. LAMICTAL [Suspect]
     Active Substance: LAMOTRIGINE
     Indication: EPILEPSY
     Dosage: 350 MG (350 MG, 1 IN 1 D),ORAL
     Route: 048
     Dates: start: 2003
  4. DELEPSINE [Suspect]
     Active Substance: VALPROATE SODIUM
     Indication: EPILEPSY
     Dosage: 1000 MG (1000 MG, 1 IN 1 D), ORAL
     Route: 048
     Dates: start: 2003
  5. ETHINYL ESTRADIOL\GESTODENE. [Suspect]
     Active Substance: ETHINYL ESTRADIOL\GESTODENE
     Indication: ORAL CONTRACEPTION
     Dosage: 1 DOSAGE FORMS (1 DOSAGE FORMS, 1 IN 1 D),ORAL
     Route: 048
     Dates: start: 2003

REACTIONS (22)
  - Thyroiditis [None]
  - Toxicity to various agents [None]
  - Drug interaction [None]
  - Needle track marks [None]
  - Dizziness [None]
  - Epilepsy [None]
  - Pulmonary oedema [None]
  - Pulmonary haemorrhage [None]
  - Aortic arteriosclerosis [None]
  - Cardiac arrest [None]
  - Fall [None]
  - Renal disorder [None]
  - Palpitations [None]
  - Aortic valve sclerosis [None]
  - Arteriosclerosis coronary artery [None]
  - Muscle haemorrhage [None]
  - Blood pressure increased [None]
  - Malaise [None]
  - Brain oedema [None]
  - Hepatomegaly [None]
  - Conjunctival haemorrhage [None]
  - Encephalitis [None]

NARRATIVE: CASE EVENT DATE: 200702
